FAERS Safety Report 10903136 (Version 2)
Quarter: 2017Q3

REPORT INFORMATION
  Report Type: Spontaneous
  Country: CA (occurrence: CA)
  Receive Date: 20150311
  Receipt Date: 20170830
  Transmission Date: 20171127
  Serious: Yes (Death, Other)
  Sender: FDA-Public Use
  Company Number: CA-AMGEN-CANSP2015021898

PATIENT

DRUGS (33)
  1. RITUXIMAB. [Suspect]
     Active Substance: RITUXIMAB
     Dosage: 375 MG/M2, QWK (FOR 6 WEEKS)
     Route: 042
  2. CISPLATIN. [Suspect]
     Active Substance: CISPLATIN
     Indication: B-CELL LYMPHOMA REFRACTORY
     Dosage: 100 MG/M2, UNK (DAY 1 AND 2)
     Route: 042
  3. DEXAMETHASONE. [Suspect]
     Active Substance: DEXAMETHASONE
     Indication: B-CELL LYMPHOMA REFRACTORY
     Dosage: 40 MG/M2, UNK (FOR 4 DAYS)
     Route: 048
  4. FLUDARABINE [Suspect]
     Active Substance: FLUDARABINE PHOSPHATE
     Indication: B-CELL LYMPHOMA RECURRENT
  5. BICNU [Suspect]
     Active Substance: CARMUSTINE
     Indication: B-CELL LYMPHOMA RECURRENT
  6. INTERFERON ALFA-2A [Suspect]
     Active Substance: INTERFERON ALFA-2A
     Indication: B-CELL LYMPHOMA REFRACTORY
  7. DOXORUBICINE [Suspect]
     Active Substance: DOXORUBICIN
     Indication: B-CELL LYMPHOMA RECURRENT
  8. FILGRASTIM [Suspect]
     Active Substance: FILGRASTIM
     Indication: B-CELL LYMPHOMA REFRACTORY
  9. INTERFERON ALFA-2A [Suspect]
     Active Substance: INTERFERON ALFA-2A
     Indication: B-CELL LYMPHOMA RECURRENT
     Dosage: UNK, 3 TIMES/WK (3 MU/M2 FOR 2 YEARS POST ASCT)
     Route: 058
  10. CYCLOPHOSPHAMIDE. [Suspect]
     Active Substance: CYCLOPHOSPHAMIDE
     Indication: B-CELL LYMPHOMA RECURRENT
     Dosage: 1.8 G/M2, UNK (OVER 2 H DAYS 6,5,4, AND 3)
     Route: 065
  11. DOXORUBICINE [Suspect]
     Active Substance: DOXORUBICIN
     Indication: B-CELL LYMPHOMA REFRACTORY
     Dosage: 50 MG/M2, UNK (DAY 1)
     Route: 042
  12. CISPLATIN. [Suspect]
     Active Substance: CISPLATIN
     Indication: B-CELL LYMPHOMA RECURRENT
     Dosage: 25 MG/M2, UNK (BY 24-H INFUSION FOR 4 DAYS)
     Route: 042
  13. BICNU [Suspect]
     Active Substance: CARMUSTINE
     Indication: B-CELL LYMPHOMA REFRACTORY
     Dosage: 0.45 G/M2, UNK (OVER 4 H DAY-2)
     Route: 065
  14. DEXAMETHASONE. [Suspect]
     Active Substance: DEXAMETHASONE
     Indication: B-CELL LYMPHOMA RECURRENT
  15. ARA-C [Suspect]
     Active Substance: CYTARABINE
     Indication: B-CELL LYMPHOMA REFRACTORY
     Dosage: 2 G/M2, UNK (OVER 2 TO 3 H ON DAY 5)
     Route: 042
  16. PREDNISONE. [Suspect]
     Active Substance: PREDNISONE
     Indication: B-CELL LYMPHOMA RECURRENT
  17. CYTARABINE. [Suspect]
     Active Substance: CYTARABINE
     Indication: B-CELL LYMPHOMA REFRACTORY
     Dosage: 2000 MG/M2, UNK (2 ON DAY 2)
     Route: 042
  18. CYTARABINE. [Suspect]
     Active Substance: CYTARABINE
     Indication: B-CELL LYMPHOMA RECURRENT
  19. METHYLPREDNISOLONE. [Suspect]
     Active Substance: METHYLPREDNISOLONE
     Indication: B-CELL LYMPHOMA RECURRENT
  20. ARA-C [Suspect]
     Active Substance: CYTARABINE
     Indication: B-CELL LYMPHOMA RECURRENT
  21. FILGRASTIM [Suspect]
     Active Substance: FILGRASTIM
     Indication: B-CELL LYMPHOMA RECURRENT
     Dosage: 10 MUG/KG, UNK (7-10 DAYS)
     Route: 065
  22. RITUXIMAB. [Suspect]
     Active Substance: RITUXIMAB
     Indication: B-CELL LYMPHOMA RECURRENT
     Dosage: 375 MG/M2, UNK (IN VIVO PURGING 3-5 DAYS PRE-STEM CELL COLLECTION. SINGLE OR 3 INFUSION)
     Route: 042
  23. CYCLOPHOSPHAMIDE. [Suspect]
     Active Substance: CYCLOPHOSPHAMIDE
     Indication: B-CELL LYMPHOMA REFRACTORY
     Dosage: 750 MG/M2, UNK (DAY 1)
     Route: 042
  24. PREDNISONE. [Suspect]
     Active Substance: PREDNISONE
     Indication: B-CELL LYMPHOMA REFRACTORY
     Dosage: 100 MG, UNK (DAY 1-5)
     Route: 048
  25. FLUDARABINE [Suspect]
     Active Substance: FLUDARABINE PHOSPHATE
     Indication: B-CELL LYMPHOMA REFRACTORY
     Dosage: UNK
     Route: 065
  26. METHYLPREDNISOLONE. [Suspect]
     Active Substance: METHYLPREDNISOLONE
     Indication: B-CELL LYMPHOMA REFRACTORY
     Dosage: 500 MG, QD (FOR 5 DAYS)
     Route: 042
  27. ETOPOSIDE. [Suspect]
     Active Substance: ETOPOSIDE
     Indication: B-CELL LYMPHOMA REFRACTORY
     Dosage: 2.4 G/M2, UNK (OVER 24 H DAYS-7 AND 6)
     Route: 065
  28. RITUXIMAB. [Suspect]
     Active Substance: RITUXIMAB
     Indication: B-CELL LYMPHOMA REFRACTORY
     Dosage: 375 MG/M2, 4 TIMES/WK (2 SETS OF 4 WEEKLY RITUXIMAB AT 2 AND 6 MONTHS POST ASCT RESPICTIVELY)
     Route: 042
  29. VINCRISTINE [Suspect]
     Active Substance: VINCRISTINE
     Indication: B-CELL LYMPHOMA REFRACTORY
     Dosage: 1.4 MG/M2, UNK (DAY 1)
     Route: 042
  30. VINCRISTINE [Suspect]
     Active Substance: VINCRISTINE
     Indication: B-CELL LYMPHOMA RECURRENT
  31. ETOPOSIDE. [Suspect]
     Active Substance: ETOPOSIDE
     Indication: B-CELL LYMPHOMA RECURRENT
  32. VP-16 [Suspect]
     Active Substance: ETOPOSIDE
     Indication: B-CELL LYMPHOMA REFRACTORY
     Dosage: 40 MG/M2, QD (FOR 4 DAYS)
     Route: 065
  33. VP-16 [Suspect]
     Active Substance: ETOPOSIDE
     Indication: B-CELL LYMPHOMA RECURRENT

REACTIONS (23)
  - Respiratory disorder [Unknown]
  - Herpes zoster [Unknown]
  - Cytopenia [Unknown]
  - Myelodysplastic syndrome [Fatal]
  - Thyroid cancer [Unknown]
  - Pulmonary fibrosis [Unknown]
  - Interstitial lung disease [Unknown]
  - Fatigue [Unknown]
  - Non-small cell lung cancer [Fatal]
  - Haemolytic uraemic syndrome [Unknown]
  - Squamous cell carcinoma [Unknown]
  - Hypogammaglobulinaemia [Unknown]
  - Respiratory tract infection [Unknown]
  - Infection [Fatal]
  - Acute myeloid leukaemia [Fatal]
  - Basal cell carcinoma [Unknown]
  - Depression [Unknown]
  - Fungal infection [Unknown]
  - Bronchitis [Unknown]
  - Diffuse large B-cell lymphoma [Fatal]
  - Colorectal adenocarcinoma [Unknown]
  - Thrombocytopenic purpura [Unknown]
  - Atrial fibrillation [Unknown]
